FAERS Safety Report 10161731 (Version 1)
Quarter: 2014Q2

REPORT INFORMATION
  Report Type: Spontaneous
  Country: US (occurrence: None)
  Receive Date: 20140508
  Receipt Date: 20140508
  Transmission Date: 20141212
  Serious: Yes (Disabling, Other)
  Sender: FDA-Public Use
  Company Number: None

PATIENT
  Age: 61 Year
  Sex: Female
  Weight: 62.6 kg

DRUGS (2)
  1. SEPTOCAINE [Suspect]
     Indication: TOOTH DISORDER
     Dates: start: 20140429
  2. SEPTOCAINE [Suspect]
     Indication: TOOTH EXTRACTION
     Dates: start: 20140429

REACTIONS (9)
  - Paraesthesia [None]
  - Hypoaesthesia [None]
  - Paraesthesia [None]
  - Oral pain [None]
  - Headache [None]
  - Ear pain [None]
  - Insomnia [None]
  - Nerve injury [None]
  - Injury associated with device [None]
